FAERS Safety Report 8329308-4 (Version None)
Quarter: 2012Q2

REPORT INFORMATION
  Report Type: 
  Country: None (occurrence: None)
  Receive Date: 20120502
  Receipt Date: 20120110
  Transmission Date: 20120825
  Serious: No
  Sender: FDA-Public Use
  Company Number: US-ASTRAZENECA-2012SE01238

PATIENT
  Age: 75 Year
  Sex: Female
  Weight: 72.6 kg

DRUGS (2)
  1. ASPIRIN [Concomitant]
     Indication: BLOOD CHOLESTEROL INCREASED
  2. FASLODEX [Suspect]
     Indication: BREAST CANCER METASTATIC
     Route: 030
     Dates: start: 20110401

REACTIONS (16)
  - THROAT TIGHTNESS [None]
  - COUGH [None]
  - CONSTIPATION [None]
  - HOT FLUSH [None]
  - DYSPNOEA [None]
  - ASTHENIA [None]
  - DEPRESSION [None]
  - FATIGUE [None]
  - DIZZINESS [None]
  - INJECTION SITE PAPULE [None]
  - AMNESIA [None]
  - THROAT IRRITATION [None]
  - RHINORRHOEA [None]
  - MALAISE [None]
  - INJECTION SITE PAIN [None]
  - ANXIETY [None]
